FAERS Safety Report 10028564 (Version 1)
Quarter: 2014Q1

REPORT INFORMATION
  Report Type: Spontaneous
  Country: TH (occurrence: None)
  Receive Date: 20140319
  Receipt Date: 20140319
  Transmission Date: 20141002
  Serious: Yes (Other)
  Sender: FDA-Public Use
  Company Number: SYM-2014-18831

PATIENT
  Sex: 0

DRUGS (1)
  1. FLUOROURACIL (FLUOROURACIL)  (FLUOROURACIL) [Suspect]
     Indication: CHOLANGIOCARCINOMA

REACTIONS (2)
  - Off label use [None]
  - Hyponatraemia [None]
